FAERS Safety Report 17496259 (Version 2)
Quarter: 2020Q1

REPORT INFORMATION
  Report Type: Spontaneous
  Country: KR (occurrence: KR)
  Receive Date: 20200303
  Receipt Date: 20200324
  Transmission Date: 20200409
  Serious: Yes (Hospitalization, Other)
  Sender: FDA-Public Use
  Company Number: KR-VISTAPHARM, INC.-VER202002-000452

PATIENT
  Age: 51 Year
  Sex: Male

DRUGS (1)
  1. HYDROCODONE AND ACETAMINOPHEN [Suspect]
     Active Substance: ACETAMINOPHEN\HYDROCODONE
     Indication: PRODUCT USED FOR UNKNOWN INDICATION
     Dosage: 23,600 MG (280.6 MG/KG)
     Route: 048

REACTIONS (4)
  - Toxicity to various agents [Unknown]
  - Procalcitonin increased [Recovered/Resolved]
  - Hepatic steatosis [Recovered/Resolved]
  - Overdose [Unknown]
